FAERS Safety Report 19247818 (Version 2)
Quarter: 2021Q2

REPORT INFORMATION
  Report Type: Report from Study
  Country: AU (occurrence: AU)
  Receive Date: 20210512
  Receipt Date: 20210518
  Transmission Date: 20210717
  Serious: Yes (Other)
  Sender: FDA-Public Use
  Company Number: AU-PFIZER INC-2010035523

PATIENT
  Age: 64 Year
  Sex: Male

DRUGS (4)
  1. MORPHINE SULFATE. [Suspect]
     Active Substance: MORPHINE SULFATE
     Indication: ANALGESIC THERAPY
     Dosage: 300 MG, DAILY
     Route: 048
  2. AMITRIPTYLINE [Interacting]
     Active Substance: AMITRIPTYLINE
     Dosage: UNK
  3. INDOMETHACIN. [Interacting]
     Active Substance: INDOMETHACIN
     Dosage: UNK
  4. THIETHYLPERAZINE [Interacting]
     Active Substance: THIETHYLPERAZINE
     Dosage: UNK

REACTIONS (3)
  - Hyperkalaemia [Unknown]
  - Myoclonus [Unknown]
  - Drug interaction [Unknown]
